FAERS Safety Report 6932008-6 (Version None)
Quarter: 2010Q3

REPORT INFORMATION
  Report Type: 
  Country: None (occurrence: None)
  Receive Date: 20100812
  Receipt Date: 20090331
  Transmission Date: 20110219
  Serious: No
  Sender: FDA-Public Use
  Company Number: 2009-01061

PATIENT
  Sex: Female
  Weight: 100.6985 kg

DRUGS (6)
  1. ZICAM COLD REMEDY GEL SWABS [Suspect]
     Indication: NASOPHARYNGITIS
     Dosage: QID X 3 DAYS
     Dates: start: 20090328, end: 20090331
  2. LISINOPRIL [Concomitant]
  3. SYNTHROID [Concomitant]
  4. DYAZIDE [Concomitant]
  5. METFORMIN [Concomitant]
  6. PRAVASTATIN [Concomitant]

REACTIONS (2)
  - AGEUSIA [None]
  - ANOSMIA [None]
